FAERS Safety Report 18048813 (Version 1)
Quarter: 2020Q3

REPORT INFORMATION
  Report Type: Spontaneous
  Country: ES (occurrence: ES)
  Receive Date: 20200721
  Receipt Date: 20200721
  Transmission Date: 20201103
  Serious: Yes (Life-Threatening, Hospitalization)
  Sender: FDA-Public Use
  Company Number: ES-CADILA HEALTHCARE LIMITED-ES-ZYDUS-034046

PATIENT

DRUGS (10)
  1. PAROXETINE. [Concomitant]
     Active Substance: PAROXETINE
     Dosage: 20 MILLIGRAM,|| DOSIS UNIDAD FRECUENCIA: 20 MG?MILIGRAMOS || DOSIS POR TOMA: 20 MG?MILIGRAMOS || N
     Route: 048
     Dates: start: 201008, end: 20161208
  2. CARVEDILOL. [Suspect]
     Active Substance: CARVEDILOL
     Indication: PRODUCT USED FOR UNKNOWN INDICATION
     Dosage: 6.25 MILLIGRAM,(INTERVAL :1 DAYS)
     Route: 048
     Dates: start: 201609, end: 20161208
  3. FUROSEMIDA [Concomitant]
     Active Substance: FUROSEMIDE
     Dosage: 40 MILLIGRAM,(INTERVAL :1 DAYS)
     Route: 048
     Dates: start: 201207, end: 20161208
  4. AMLODIPINE [Suspect]
     Active Substance: AMLODIPINE BESYLATE
     Indication: PRODUCT USED FOR UNKNOWN INDICATION
     Dosage: 5 MILLIGRAM
     Route: 048
     Dates: start: 201008, end: 20161208
  5. REPAGLINIDA [Concomitant]
     Active Substance: REPAGLINIDE
     Indication: TYPE 2 DIABETES MELLITUS
     Dosage: .5 MILLIGRAM,(INTERVAL :1 DAYS)
     Route: 048
     Dates: start: 20140310, end: 20161208
  6. BRINZOLAMIDE [Concomitant]
     Active Substance: BRINZOLAMIDE
     Indication: GLAUCOMA
     Route: 047
     Dates: start: 20160509, end: 20161208
  7. AZARGA 10 MG/ ML + 5 MG/ ML COLIRIO EN SUSPENSION, 1 FRASCO DE 5 ML [Concomitant]
     Indication: GLAUCOMA
     Dosage: ()
     Route: 047
     Dates: start: 20160509, end: 20161208
  8. REPAGLINIDE. [Concomitant]
     Active Substance: REPAGLINIDE
     Indication: TYPE 2 DIABETES MELLITUS
     Dosage: .5 MILLIGRAM,(INTERVAL :1 DAYS)
     Route: 048
     Dates: start: 20140310, end: 20161208
  9. FUROSEMIDE. [Concomitant]
     Active Substance: FUROSEMIDE
     Dosage: 40 MILLIGRAM,(INTERVAL :1 DAYS)
     Route: 048
     Dates: start: 201207, end: 20161208
  10. PAROXETINE. [Concomitant]
     Active Substance: PAROXETINE
     Dosage: 20 MILLIGRAM,DOSAGE UNIT FREQUENCY 20 MILLIGRAMS DOSAGE PER DOSE 20 MILLIGRAMS NO. OF DOSES PER,(INT
     Route: 048
     Dates: start: 201008, end: 20161208

REACTIONS (1)
  - Atrioventricular block [Recovered/Resolved with Sequelae]

NARRATIVE: CASE EVENT DATE: 20161208
